FAERS Safety Report 7415753-8 (Version None)
Quarter: 2011Q2

REPORT INFORMATION
  Report Type: 
  Country: None (occurrence: None)
  Receive Date: 20110406
  Receipt Date: 20110323
  Transmission Date: 20111010
  Serious: Yes (Other)
  Sender: FDA-Public Use
  Company Number: NGX_00377_2011

PATIENT
  Age: 25 Year
  Sex: Female

DRUGS (1)
  1. QUTENZA [Suspect]
     Indication: PAIN IN EXTREMITY
     Dosage: ([PATCH] TOPICAL)
     Route: 061
     Dates: start: 20110309

REACTIONS (2)
  - BURNS SECOND DEGREE [None]
  - APPLICATION SITE PAPULES [None]
